FAERS Safety Report 7293010-0 (Version None)
Quarter: 2011Q1

REPORT INFORMATION
  Report Type: 
  Country: None (occurrence: None)
  Receive Date: 20110215
  Receipt Date: 20110210
  Transmission Date: 20110831
  Serious: Yes (Other)
  Sender: FDA-Public Use
  Company Number: US-ROCHE-736497

PATIENT
  Sex: Female
  Weight: 49 kg

DRUGS (2)
  1. ACCUTANE [Suspect]
     Route: 065
     Dates: start: 19970101, end: 19980101
  2. ACCUTANE [Suspect]
     Indication: ACNE
     Route: 065
     Dates: start: 19950101, end: 19960101

REACTIONS (12)
  - DEPRESSION [None]
  - COLITIS ULCERATIVE [None]
  - RECTAL HAEMORRHAGE [None]
  - INTESTINAL HAEMORRHAGE [None]
  - COLONIC POLYP [None]
  - ABDOMINAL PAIN [None]
  - HERPES ZOSTER [None]
  - INFLAMMATORY BOWEL DISEASE [None]
  - HYPERSENSITIVITY [None]
  - THROMBOCYTOSIS [None]
  - GASTROINTESTINAL INJURY [None]
  - LICHEN PLANUS [None]
